FAERS Safety Report 11694860 (Version 1)
Quarter: 2015Q4

REPORT INFORMATION
  Report Type: Spontaneous
  Country: US (occurrence: US)
  Receive Date: 20151103
  Receipt Date: 20151103
  Transmission Date: 20160304
  Serious: No
  Sender: FDA-Public Use
  Company Number: US-TEVA-605769ACC

PATIENT
  Sex: Female

DRUGS (2)
  1. ETHANOL/PARACETAMOL/DEXTROMETHORPHAN HYDROBROMIDE/EPHEDRINE SULFATE/DOXYLAMINE SUCCINATE [Concomitant]
     Indication: MALAISE
     Route: 065
  2. PLAN B ONE-STEP [Suspect]
     Active Substance: LEVONORGESTREL
     Indication: POST COITAL CONTRACEPTION
     Dates: start: 20151026, end: 20151026

REACTIONS (3)
  - Malaise [Not Recovered/Not Resolved]
  - Pyrexia [Unknown]
  - Cough [Unknown]
